FAERS Safety Report 8966499 (Version 3)
Quarter: 2013Q4

REPORT INFORMATION
  Report Type: Report from Study
  Country: JP (occurrence: JP)
  Receive Date: 20121217
  Receipt Date: 20131205
  Transmission Date: 20140711
  Serious: Yes (Hospitalization)
  Sender: FDA-Public Use
  Company Number: JP-VERTEX PHARMACEUTICALS INC.-2012-026159

PATIENT
  Age: 57 Year
  Sex: Male

DRUGS (14)
  1. VX-950 (TELAPREVIR) [Suspect]
     Indication: CHRONIC HEPATITIS C
     Dosage: 2250 MG, QD
     Route: 048
     Dates: start: 20120907, end: 20120909
  2. VX-950 (TELAPREVIR) [Suspect]
     Dosage: 1500 MG, QD
     Route: 048
     Dates: start: 20120910, end: 20121125
  3. REBETOL [Suspect]
     Indication: CHRONIC HEPATITIS C
     Dosage: 600 MG, QD
     Route: 048
     Dates: start: 20120907, end: 20121125
  4. PEGINTRON [Suspect]
     Indication: CHRONIC HEPATITIS C
     Dosage: 80 ?G, QW
     Route: 058
     Dates: start: 20120907
  5. URSO [Concomitant]
     Dosage: 600 MG, QD
     Route: 048
  6. PREDONINE [Concomitant]
     Dosage: 12.5 MG, QD
     Route: 048
  7. PARIET [Concomitant]
     Dosage: 10 MG, QD
     Route: 048
  8. ALENDRONIC ACID [Concomitant]
     Dosage: 35 MG, QD
     Route: 048
  9. SHAKUYAKUKANZOTO [Concomitant]
     Dosage: 7.5 G, QD
     Route: 048
     Dates: end: 20121130
  10. SPIRONOLACTONE [Concomitant]
     Dosage: 25 MG, QD
     Route: 048
  11. RIKKUNSHITO [Concomitant]
     Dosage: 7.5 G, QD
     Route: 048
     Dates: start: 20120907, end: 20121130
  12. TALION [Concomitant]
     Dosage: 20 MG, QD
     Route: 048
     Dates: start: 20120907, end: 20121125
  13. FAMOTIDINE [Concomitant]
     Dosage: 40 MG, UNK
     Route: 042
     Dates: start: 20121126, end: 20121204
  14. FAMOTIDINE [Concomitant]
     Dosage: 40 MG, UNK
     Route: 042
     Dates: start: 20121207, end: 20121214

REACTIONS (1)
  - Pancreatitis acute [Recovered/Resolved]
